FAERS Safety Report 25439148 (Version 1)
Quarter: 2025Q2

REPORT INFORMATION
  Report Type: Spontaneous
  Country: PT (occurrence: PT)
  Receive Date: 20250616
  Receipt Date: 20250616
  Transmission Date: 20250716
  Serious: Yes (Other)
  Sender: DAIICHI
  Company Number: PT-DSJP-DS-2025-146795-PTAA

PATIENT
  Age: 69 Year
  Sex: Male

DRUGS (1)
  1. EDOXABAN [Suspect]
     Active Substance: EDOXABAN
     Indication: Atrial fibrillation
     Route: 065

REACTIONS (3)
  - Haemangioma [Unknown]
  - Melaena [Unknown]
  - Haemoglobin decreased [Unknown]
